FAERS Safety Report 5605918-X (Version None)
Quarter: 2008Q1

REPORT INFORMATION
  Report Type: 
  Country: None (occurrence: None)
  Receive Date: 20080124
  Receipt Date: 20080124
  Transmission Date: 20080703
  Serious: Yes (Other)
  Sender: FDA-Public Use
  Company Number: None

PATIENT
  Age: 26 Year
  Sex: Female
  Weight: 61.2356 kg

DRUGS (2)
  1. LUPRON DEPOT [Suspect]
     Indication: ENDOMETRIOSIS
     Dosage: 3.75 MG MONTLY IM
     Route: 030
     Dates: start: 20001101, end: 20010430
  2. LUPRON DEPOT [Suspect]
     Indication: ENDOMETRIOSIS
     Dosage: 3.75 MG MONTLY IM
     Route: 030
     Dates: start: 20040401, end: 20041031

REACTIONS (7)
  - ARTHRALGIA [None]
  - BONE PAIN [None]
  - FATIGUE [None]
  - HOT FLUSH [None]
  - MOOD SWINGS [None]
  - MYALGIA [None]
  - NIGHT SWEATS [None]
